FAERS Safety Report 8219397-X (Version None)
Quarter: 2012Q1

REPORT INFORMATION
  Report Type: 
  Country: None (occurrence: None)
  Receive Date: 20120319
  Receipt Date: 20120313
  Transmission Date: 20120608
  Serious: Yes (Death, Hospitalization)
  Sender: FDA-Public Use
  Company Number: SK-PFIZER INC-2012065949

PATIENT
  Age: 67 Year
  Sex: Male

DRUGS (6)
  1. VANCOMYCIN [Suspect]
  2. IMIPENEM AND CILASTATIN SODIUM [Suspect]
  3. TIGECYCLINE [Suspect]
  4. ZYVOX [Suspect]
  5. DIFLUCAN [Suspect]
  6. CEFOPERAZONE SODIUM [Suspect]

REACTIONS (1)
  - OESOPHAGEAL DISORDER [None]
